FAERS Safety Report 7734881-0 (Version None)
Quarter: 2011Q3

REPORT INFORMATION
  Report Type: 
  Country: None (occurrence: None)
  Receive Date: 20110907
  Receipt Date: 20110824
  Transmission Date: 20111222
  Serious: Yes (Other)
  Sender: FDA-Public Use
  Company Number: PHHY2011BR76557

PATIENT
  Sex: Male
  Weight: 73 kg

DRUGS (1)
  1. DIOVAN HCT [Suspect]
     Dosage: 1 DF, (160/12.5 MG ONE TABLET DAILY)

REACTIONS (1)
  - ARRHYTHMIA [None]
